FAERS Safety Report 19657143 (Version 1)
Quarter: 2021Q3

REPORT INFORMATION
  Report Type: Spontaneous
  Country: FR (occurrence: FR)
  Receive Date: 20210804
  Receipt Date: 20210804
  Transmission Date: 20211014
  Serious: Yes (Hospitalization, Other)
  Sender: FDA-Public Use
  Company Number: FR-MYLANLABS-2021M1047655

PATIENT
  Age: 61 Year
  Sex: Male

DRUGS (5)
  1. GEMCITABINE. [Suspect]
     Active Substance: GEMCITABINE
     Indication: DUCTAL ADENOCARCINOMA OF PANCREAS
     Dosage: TEMPORARILY DISCONTINUED
     Route: 042
     Dates: start: 20200916, end: 20200916
  2. L?ASPARAGINASE [Suspect]
     Active Substance: ASPARAGINASE
     Indication: DUCTAL ADENOCARCINOMA OF PANCREAS
     Dosage: DOSE: 100 U/KG, PRIOR TO SAE ONSET, GIVEN ON THE WEEK 1, 2 AND 3 OF EACH TREATMENT CYCLE
     Route: 042
     Dates: start: 20200916, end: 20200916
  3. L?ASPARAGINASE [Suspect]
     Active Substance: ASPARAGINASE
     Dosage: DOSE: 100 U/KG, PRIOR TO SAE ONSET, GIVEN ON THE WEEK 1, 2 AND 3 OF EACH TREATMENT CYCLE
     Route: 042
     Dates: start: 20200528, end: 20200814
  4. ABRAXANE [Suspect]
     Active Substance: PACLITAXEL
     Indication: DUCTAL ADENOCARCINOMA OF PANCREAS
     Dosage: TEMPORARILY DISCONTINUED
     Route: 042
     Dates: start: 20200528, end: 20200821
  5. GEMCITABINE. [Suspect]
     Active Substance: GEMCITABINE
     Dosage: 800 MILLIGRAM/SQ. METER, TEMPORARILY DISCONTINUED
     Route: 042
     Dates: start: 20200528, end: 20200821

REACTIONS (3)
  - Pancytopenia [Recovered/Resolved]
  - Sepsis [Recovered/Resolved]
  - Gastrointestinal obstruction [Recovered/Resolved]

NARRATIVE: CASE EVENT DATE: 20200828
